FAERS Safety Report 4546391-2 (Version None)
Quarter: 2005Q1

REPORT INFORMATION
  Report Type: 
  Country: None (occurrence: None)
  Receive Date: 20050103
  Receipt Date: 20041209
  Transmission Date: 20050727
  Serious: Yes (Hospitalization)
  Sender: FDA-Public Use
  Company Number: EWC041041045

PATIENT
  Age: 60 Year
  Sex: Female

DRUGS (22)
  1. HUMULIN 70/30 [Suspect]
     Indication: DIABETES MELLITUS
     Dosage: 52 IU DAY
     Dates: start: 20040612, end: 20041014
  2. IMDUR (ISOSORBIDE MONONITRAE) [Concomitant]
  3. DEPLATT-A [Concomitant]
  4. CARDIMAX SR [Concomitant]
  5. LANOXIN (DIGOXIN STREULI) [Concomitant]
  6. AMIODARONE [Concomitant]
  7. RAMIPRIL [Concomitant]
  8. NICORANDIL [Concomitant]
  9. CARDIVAS (CARVEDILOL) [Concomitant]
  10. LEVOCARNITINE [Concomitant]
  11. ATORVASTATIN [Concomitant]
  12. TORSEMIDE [Concomitant]
  13. PANTOPRAZOLE [Concomitant]
  14. ALUMINIUM HYDROXIDE GEL, DRIED [Concomitant]
  15. MAGNESIUM TRISILICATE [Concomitant]
  16. MAGNESIUM HYDROXIDE TAB [Concomitant]
  17. SIMETHICONE [Concomitant]
  18. OXETHAZINE [Concomitant]
  19. GLUCOBAY [Concomitant]
  20. B-FOLESH [Concomitant]
  21. LEVOFLOXACIN [Concomitant]
  22. TRIXONE (CEFTRIAXONE SODIUM) [Concomitant]

REACTIONS (4)
  - DIABETES MELLITUS INADEQUATE CONTROL [None]
  - DRUG INEFFECTIVE [None]
  - MEDICATION ERROR [None]
  - RENAL DISORDER [None]
